FAERS Safety Report 7099265-X (Version None)
Quarter: 2010Q4

REPORT INFORMATION
  Report Type: 
  Country: None (occurrence: None)
  Receive Date: 20101104
  Receipt Date: 20101021
  Transmission Date: 20110411
  Serious: Yes (Other)
  Sender: FDA-Public Use
  Company Number: 020803

PATIENT
  Sex: Female
  Weight: 99 kg

DRUGS (5)
  1. CIMZIA [Suspect]
     Indication: CROHN'S DISEASE
     Dosage: (400 MG 1X/MONTH SUBCUTANEOUS)
     Route: 058
     Dates: start: 20100504
  2. DARVOCET [Concomitant]
  3. IZOFRAN /00955031/ [Concomitant]
  4. PRAVACHOL [Concomitant]
  5. XANAX [Concomitant]

REACTIONS (1)
  - PAPILLOMA VIRAL INFECTION [None]
